FAERS Safety Report 25289791 (Version 1)
Quarter: 2025Q2

REPORT INFORMATION
  Report Type: Report from Study
  Country: US (occurrence: US)
  Receive Date: 20250509
  Receipt Date: 20250509
  Transmission Date: 20250717
  Serious: No
  Sender: IPSEN BIOPHARMACEUTICALS, INC.
  Company Number: US-IPSEN Group, Research and Development-2025-00712

PATIENT
  Age: 16 Month
  Sex: Female
  Weight: 9.2 kg

DRUGS (3)
  1. BYLVAY [Suspect]
     Active Substance: ODEVIXIBAT
     Indication: Progressive familial intrahepatic cholestasis
     Route: 048
     Dates: start: 20240807
  2. BYLVAY [Suspect]
     Active Substance: ODEVIXIBAT
     Dosage: SPLIT BID TO 400 MCG  9 AM AND 600 MCG 9 PM
     Route: 048
     Dates: start: 20250129, end: 20250215
  3. BYLVAY [Suspect]
     Active Substance: ODEVIXIBAT
     Route: 048

REACTIONS (4)
  - Pyrexia [Unknown]
  - Alanine aminotransferase increased [Recovering/Resolving]
  - Hepatic enzyme increased [Not Recovered/Not Resolved]
  - Bile acids increased [Unknown]

NARRATIVE: CASE EVENT DATE: 20250205
